FAERS Safety Report 5814918-6 (Version None)
Quarter: 2008Q3

REPORT INFORMATION
  Report Type: 
  Country: None (occurrence: None)
  Receive Date: 20080718
  Receipt Date: 20080708
  Transmission Date: 20090109
  Serious: Yes (Hospitalization, Other)
  Sender: FDA-Public Use
  Company Number: US-ABBOTT-08P-163-0461407-00

PATIENT
  Sex: Female
  Weight: 104.42 kg

DRUGS (6)
  1. SYNTHROID [Suspect]
     Indication: HYPOTHYROIDISM
     Route: 048
     Dates: start: 20000101, end: 20071101
  2. SYNTHROID [Suspect]
     Dosage: 88 MCG DAILY
     Route: 048
     Dates: start: 20080501
  3. SYNTHROID [Suspect]
     Indication: HYPOTHYROIDISM
     Dates: start: 20071101, end: 20080501
  4. ESTROGENS CONJUGATED [Concomitant]
     Indication: HYSTERECTOMY
     Route: 048
     Dates: start: 20060101
  5. MERIPAX [Concomitant]
     Indication: RESTLESS LEGS SYNDROME
     Route: 048
     Dates: start: 20071101
  6. VENLAFAXINE HYDROCHLORIDE [Concomitant]
     Indication: DEPRESSION
     Route: 048
     Dates: start: 20050101

REACTIONS (7)
  - ABDOMINAL PAIN [None]
  - LABORATORY TEST ABNORMAL [None]
  - OOPHORITIS [None]
  - OVARIAN TORSION [None]
  - RASH ERYTHEMATOUS [None]
  - RASH PRURITIC [None]
  - UTERINE PROLAPSE [None]
